FAERS Safety Report 20418598 (Version 4)
Quarter: 2022Q3

REPORT INFORMATION
  Report Type: Spontaneous
  Country: US (occurrence: US)
  Receive Date: 20220202
  Receipt Date: 20220911
  Transmission Date: 20221027
  Serious: No
  Sender: FDA-Public Use
  Company Number: US-SA-SAC20220128000209

PATIENT
  Age: 36 Year
  Sex: Female

DRUGS (1)
  1. DUPIXENT [Suspect]
     Active Substance: DUPILUMAB
     Indication: Asthma
     Dosage: 300 MG
     Route: 058
     Dates: start: 202111

REACTIONS (11)
  - Abdominal pain upper [Unknown]
  - Enteritis [Unknown]
  - Injection site haemorrhage [Not Recovered/Not Resolved]
  - Nasopharyngitis [Unknown]
  - Cough [Unknown]
  - Nasal congestion [Unknown]
  - Vascular injury [Unknown]
  - Contusion [Unknown]
  - Rhinorrhoea [Unknown]
  - Injection site bruising [Not Recovered/Not Resolved]
  - Injection site reaction [Unknown]

NARRATIVE: CASE EVENT DATE: 20220101
